FAERS Safety Report 11218313 (Version 1)
Quarter: 2015Q2

REPORT INFORMATION
  Report Type: Report from Study
  Country: JP (occurrence: JP)
  Receive Date: 20150625
  Receipt Date: 20150625
  Transmission Date: 20150821
  Serious: Yes (Death)
  Sender: FDA-Public Use
  Company Number: JP-BAYER-2015-358473

PATIENT
  Age: 76 Year
  Sex: Male
  Weight: 66 kg

DRUGS (4)
  1. EPIRUBICIN [Concomitant]
     Active Substance: EPIRUBICIN
     Indication: HEPATOCELLULAR CARCINOMA
     Dosage: 50 MG
  2. LIPIODOL [Concomitant]
     Active Substance: ETHIODIZED OIL
     Indication: HEPATOCELLULAR CARCINOMA
     Dosage: GELATIN FOAM
  3. SORAFENIB [Suspect]
     Active Substance: SORAFENIB
     Indication: HEPATOCELLULAR CARCINOMA
     Dosage: 400 MG, QD
     Route: 048
     Dates: start: 20141027, end: 20150322
  4. MITOMYCIN. [Concomitant]
     Active Substance: MITOMYCIN
     Indication: HEPATOCELLULAR CARCINOMA
     Dosage: 25  MG

REACTIONS (1)
  - Neoplasm malignant [Fatal]

NARRATIVE: CASE EVENT DATE: 20150609
